FAERS Safety Report 4288932-9 (Version None)
Quarter: 2004Q1

REPORT INFORMATION
  Report Type: 
  Country: None (occurrence: None)
  Receive Date: 20040205
  Receipt Date: 20021216
  Transmission Date: 20041129
  Serious: Yes (Hospitalization)
  Sender: FDA-Public Use
  Company Number: ETHYOL-02210

PATIENT
  Age: 59 Year
  Sex: Male
  Weight: 98.8842 kg

DRUGS (5)
  1. ETHYOL [Suspect]
     Dosage: 500 MG, 5 IN 1 WK, SUBCUTANEOUS
     Route: 058
     Dates: start: 20021202, end: 20021211
  2. AVALIDE [Concomitant]
  3. LIPITOR [Concomitant]
  4. DARVOCET [Concomitant]
  5. CAMPAZINE (PROCHLORPERAZINE EDYSILATE) [Concomitant]

REACTIONS (3)
  - HYPERSENSITIVITY [None]
  - LARYNGEAL OEDEMA [None]
  - TOXIC EPIDERMAL NECROLYSIS [None]
